FAERS Safety Report 8134359-9 (Version None)
Quarter: 2012Q1

REPORT INFORMATION
  Report Type: 
  Country: None (occurrence: None)
  Receive Date: 20120209
  Receipt Date: 20120120
  Transmission Date: 20120608
  Serious: Yes (Other)
  Sender: FDA-Public Use
  Company Number: 2012000011

PATIENT
  Age: 65 Year
  Sex: Female

DRUGS (8)
  1. DIAMICRON MR (GLICLAZIDE) [Concomitant]
  2. PERINDOPRIL ERBUMINE [Suspect]
     Indication: HYPERTENSION
     Dosage: Q10 MG, QD, ORAL
     Route: 048
     Dates: start: 20111215, end: 20120112
  3. AMLODIPINE BESYLATE [Concomitant]
  4. GLUCOPHAGE [Concomitant]
  5. PREXUM PLUS (INDAPAMIDE, PERINDOPRIL) [Suspect]
     Indication: HYPERTENSION
     Dosage: 1.25 MG/4 MG, QD, ORAL
     Route: 048
     Dates: start: 20120117, end: 20120118
  6. ASPIRIN [Concomitant]
  7. ACEON [Suspect]
     Indication: HYPERTENSION
     Dosage: 4 MG, QD, ORAL
     Route: 048
     Dates: start: 20111115, end: 20111214
  8. ADCO-SIMVASTATIN (SIMVASTATIN) [Concomitant]

REACTIONS (3)
  - DRY MOUTH [None]
  - DIZZINESS [None]
  - SUPRAVENTRICULAR EXTRASYSTOLES [None]
